FAERS Safety Report 5598678-2 (Version None)
Quarter: 2008Q1

REPORT INFORMATION
  Report Type: 
  Country: None (occurrence: None)
  Receive Date: 20080122
  Receipt Date: 20080121
  Transmission Date: 20080703
  Serious: Yes (Hospitalization)
  Sender: FDA-Public Use
  Company Number: IT-WYE-G00891708

PATIENT
  Sex: Male

DRUGS (4)
  1. TEMSIROLIMUS [Suspect]
     Indication: RENAL CANCER METASTATIC
     Route: 042
     Dates: start: 20071126, end: 20071211
  2. RAMIPRIL [Concomitant]
     Indication: HYPERTENSION
  3. CANRENOIC ACID [Concomitant]
     Indication: HYPERTENSION
  4. PREDNISONE [Concomitant]
     Indication: CANCER PAIN

REACTIONS (2)
  - PULMONARY OEDEMA [None]
  - RENAL FAILURE ACUTE [None]
